FAERS Safety Report 7017635-2 (Version None)
Quarter: 2010Q3

REPORT INFORMATION
  Report Type: 
  Country: None (occurrence: None)
  Receive Date: 20100928
  Receipt Date: 20100915
  Transmission Date: 20110219
  Serious: Yes (Other)
  Sender: FDA-Public Use
  Company Number: US-PFIZER INC-2010117664

PATIENT
  Sex: Male
  Weight: 68.03 kg

DRUGS (3)
  1. LYRICA [Suspect]
     Indication: PAIN IN EXTREMITY
     Dosage: 150 MG, 3X/DAY
     Route: 048
     Dates: start: 20100601, end: 20100701
  2. NEURONTIN [Suspect]
     Indication: PAIN IN EXTREMITY
     Dosage: 600 MG,5XDAY
     Route: 048
     Dates: start: 20080101
  3. WARFARIN [Concomitant]
     Indication: ANTICOAGULANT THERAPY
     Dosage: UNK

REACTIONS (5)
  - AGGRESSION [None]
  - DEPRESSION [None]
  - MEMORY IMPAIRMENT [None]
  - MOOD ALTERED [None]
  - THROMBOSIS [None]
